FAERS Safety Report 25074570 (Version 2)
Quarter: 2025Q3

REPORT INFORMATION
  Report Type: Report from Study
  Country: US (occurrence: US)
  Receive Date: 20250313
  Receipt Date: 20250803
  Transmission Date: 20251020
  Serious: Yes (Other)
  Sender: ALEXION PHARMACEUTICALS
  Company Number: US-AstraZeneca-CH-00824038A

PATIENT
  Sex: Female
  Weight: 53.5 kg

DRUGS (9)
  1. OSIMERTINIB [Suspect]
     Active Substance: OSIMERTINIB
     Indication: Lung neoplasm malignant
     Dosage: 80 MILLIGRAM, QD
     Dates: start: 20240209
  2. DUPIXENT [Concomitant]
     Active Substance: DUPILUMAB
     Route: 065
  3. FLONASE [Concomitant]
     Active Substance: FLUTICASONE PROPIONATE
     Route: 065
  4. LEVOTHYROXINE SODIUM [Concomitant]
     Active Substance: LEVOTHYROXINE SODIUM
     Route: 065
  5. OMEPRAZOLE [Concomitant]
     Active Substance: OMEPRAZOLE
     Route: 065
  6. VITAMIN D3 [Concomitant]
     Active Substance: CHOLECALCIFEROL
     Route: 065
  7. BREO ELLIPTA [Concomitant]
     Active Substance: FLUTICASONE FUROATE\VILANTEROL TRIFENATATE
     Route: 065
  8. Peridin-c [Concomitant]
     Route: 065
  9. BIOTIN [Concomitant]
     Active Substance: BIOTIN
     Route: 065

REACTIONS (7)
  - Syncope [Unknown]
  - Fall [Unknown]
  - Head injury [Unknown]
  - Concussion [Unknown]
  - COVID-19 [Unknown]
  - Headache [Unknown]
  - Constipation [Unknown]
